FAERS Safety Report 17353590 (Version 3)
Quarter: 2020Q1

REPORT INFORMATION
  Report Type: Spontaneous
  Country: US (occurrence: US)
  Receive Date: 20200131
  Receipt Date: 20200327
  Transmission Date: 20200409
  Serious: Yes (Hospitalization, Other)
  Sender: FDA-Public Use
  Company Number: US-GILEAD-2020-0448970

PATIENT
  Age: 47 Year
  Sex: Male

DRUGS (49)
  1. OXYCODONE AND ACETAMINOPHEN [Concomitant]
     Active Substance: ACETAMINOPHEN\OXYCODONE HYDROCHLORIDE
  2. PREZISTA [Concomitant]
     Active Substance: DARUNAVIR ETHANOLATE
  3. SINGULAIR [Concomitant]
     Active Substance: MONTELUKAST SODIUM
  4. TYLENOL EXTRA STRENGTH [Concomitant]
     Active Substance: ACETAMINOPHEN
  5. FAMCICLOVIR. [Concomitant]
     Active Substance: FAMCICLOVIR
  6. ASPIRIN (E.C.) [Concomitant]
     Active Substance: ASPIRIN
  7. ESCITALOPRAM [Concomitant]
     Active Substance: ESCITALOPRAM OXALATE
  8. INDOMETHACIN [INDOMETACIN] [Concomitant]
     Active Substance: INDOMETHACIN
  9. SODIUM BICARBONATE. [Concomitant]
     Active Substance: SODIUM BICARBONATE
  10. TRIZIVIR [Concomitant]
     Active Substance: ABACAVIR SULFATE\LAMIVUDINE\ZIDOVUDINE
  11. ONDANSETRON HCL [Concomitant]
     Active Substance: ONDANSETRON HYDROCHLORIDE
  12. FORTEO [Concomitant]
     Active Substance: TERIPARATIDE
  13. METHOCARBAMOL. [Concomitant]
     Active Substance: METHOCARBAMOL
  14. ISENTRESS [Concomitant]
     Active Substance: RALTEGRAVIR POTASSIUM
  15. LYRICA [Concomitant]
     Active Substance: PREGABALIN
  16. RANI [Concomitant]
  17. MEGACE ES [Concomitant]
     Active Substance: MEGESTROL ACETATE
  18. DESCOVY [Concomitant]
     Active Substance: EMTRICITABINE\TENOFOVIR ALAFENAMIDE FUMARATE
  19. IOPAMIDOL [Concomitant]
     Active Substance: IOPAMIDOL
  20. ATENOLOL. [Concomitant]
     Active Substance: ATENOLOL
  21. CELEBREX [Concomitant]
     Active Substance: CELECOXIB
  22. TRAZODONE [Concomitant]
     Active Substance: TRAZODONE HYDROCHLORIDE
  23. KEFLEXIN [Concomitant]
     Active Substance: CEPHALEXIN
  24. DIVALPROEX [Concomitant]
     Active Substance: DIVALPROEX SODIUM
  25. MECLIZINE HCL [Concomitant]
     Active Substance: MECLIZINE HYDROCHLORIDE
  26. SOMA COMPOUND [Concomitant]
     Active Substance: ASPIRIN\CARISOPRODOL
  27. INFLUENZA [Concomitant]
     Active Substance: INFLUENZA VIRUS VACCINE
  28. ANDRODERM [Concomitant]
     Active Substance: TESTOSTERONE
  29. VIREAD [Suspect]
     Active Substance: TENOFOVIR DISOPROXIL FUMARATE
     Indication: HIV INFECTION
     Dosage: UNK
     Route: 048
     Dates: start: 20090130, end: 20140723
  30. TIVICAY [Concomitant]
     Active Substance: DOLUTEGRAVIR SODIUM
  31. TIZANIDINE. [Concomitant]
     Active Substance: TIZANIDINE
  32. CEFAZOLIN [Concomitant]
     Active Substance: CEFAZOLIN
  33. CHLORHEXIDINE [Concomitant]
     Active Substance: CHLORHEXIDINE
  34. GABA [GABAPENTIN] [Concomitant]
     Active Substance: GABAPENTIN
  35. MONTELUKAST [Concomitant]
     Active Substance: MONTELUKAST SODIUM
  36. NORCO [Concomitant]
     Active Substance: ACETAMINOPHEN\HYDROCODONE BITARTRATE
  37. NORVIR [Concomitant]
     Active Substance: RITONAVIR
  38. DOXYCYCLINE. [Concomitant]
     Active Substance: DOXYCYCLINE
  39. LAMOTRIGINE. [Concomitant]
     Active Substance: LAMOTRIGINE
  40. MAGNESIUM GLUCONATE [Concomitant]
     Active Substance: MAGNESIUM GLUCONATE
  41. POTASSIUM CITRATE. [Concomitant]
     Active Substance: POTASSIUM CITRATE
  42. PNEUMOVAX 23 [Concomitant]
     Active Substance: PNEUMOCOCCAL VACCINE, POLYVALENT 23
  43. EFFEXOR XR [Concomitant]
     Active Substance: VENLAFAXINE HYDROCHLORIDE
  44. SULFAMETHOXAZOLE AND TRIMETHOPRIM [Concomitant]
     Active Substance: SULFAMETHOXAZOLE\TRIMETHOPRIM
  45. LOPERAMIDE [Concomitant]
     Active Substance: LOPERAMIDE
  46. DICLOXACILLIN [Concomitant]
     Active Substance: DICLOXACILLIN
  47. FERROUS GLUCONATE ARROW [Concomitant]
  48. VANCOMYCIN [Concomitant]
     Active Substance: VANCOMYCIN
  49. VENOFER [Concomitant]
     Active Substance: IRON SUCROSE

REACTIONS (20)
  - Femur fracture [Recovered/Resolved]
  - Osteopenia [Recovered/Resolved]
  - Acute kidney injury [Recovered/Resolved]
  - Bone loss [Unknown]
  - Anxiety [Unknown]
  - Hip arthroplasty [Not Recovered/Not Resolved]
  - Pain [Unknown]
  - Hip arthroplasty [Not Recovered/Not Resolved]
  - Hip arthroplasty [Not Recovered/Not Resolved]
  - Renal impairment [Unknown]
  - Osteonecrosis [Not Recovered/Not Resolved]
  - Economic problem [Unknown]
  - Anhedonia [Unknown]
  - Bone density decreased [Recovered/Resolved]
  - Fracture [Unknown]
  - Osteoporosis [Not Recovered/Not Resolved]
  - Hip arthroplasty [Not Recovered/Not Resolved]
  - Chronic kidney disease [Not Recovered/Not Resolved]
  - Fanconi syndrome acquired [Not Recovered/Not Resolved]
  - Emotional distress [Unknown]

NARRATIVE: CASE EVENT DATE: 20130621
